FAERS Safety Report 20709959 (Version 3)
Quarter: 2022Q2

REPORT INFORMATION
  Report Type: Other
  Country: TR (occurrence: None)
  Receive Date: 20220414
  Receipt Date: 20220519
  Transmission Date: 20220721
  Serious: Yes (Other)
  Sender: FDA-Public Use
  Company Number: TR-ROCHE-3072877

PATIENT
  Age: 42 Year
  Sex: Male
  Weight: 88 kg

DRUGS (6)
  1. ALECTINIB [Suspect]
     Active Substance: ALECTINIB
     Indication: Non-small cell lung cancer
     Dosage: DATE OF MOST RECENT DOSE OF STUDY DRUG PRIOR TO AE: 07/APR/2022 (1200 MG)
     Route: 048
     Dates: start: 20211110
  2. KEPPRA [Suspect]
     Active Substance: LEVETIRACETAM
     Indication: Radiotherapy to brain
     Route: 048
     Dates: start: 20211001
  3. FAMOTIDINE [Concomitant]
     Active Substance: FAMOTIDINE
     Indication: Radiotherapy to brain
     Route: 048
     Dates: start: 20211103
  4. VEMLIDY [Concomitant]
     Active Substance: TENOFOVIR ALAFENAMIDE FUMARATE
     Indication: Hepatitis B surface antigen positive
     Route: 048
     Dates: start: 20220224
  5. DUPHALAC [Concomitant]
     Active Substance: LACTULOSE
     Indication: COVID-19
     Route: 048
     Dates: start: 20220224
  6. OKSAPAR [Concomitant]
     Route: 058
     Dates: start: 20220224

REACTIONS (1)
  - Hepatitis [Recovered/Resolved]

NARRATIVE: CASE EVENT DATE: 20220408
